FAERS Safety Report 8352288-2 (Version None)
Quarter: 2012Q2

REPORT INFORMATION
  Report Type: 
  Country: None (occurrence: None)
  Receive Date: 20120511
  Receipt Date: 20120430
  Transmission Date: 20120825
  Serious: Yes (Hospitalization, Other)
  Sender: FDA-Public Use
  Company Number: US-PERRIGO-12US000517

PATIENT
  Sex: Male
  Weight: 77.098 kg

DRUGS (5)
  1. ZOCOR [Concomitant]
     Indication: BLOOD CHOLESTEROL ABNORMAL
     Dosage: 20 MG, QD
     Route: 065
     Dates: start: 19970101
  2. GABAPENTIN [Concomitant]
     Indication: BACK DISORDER
     Dosage: 300 MG, TID
     Route: 065
     Dates: start: 20111101
  3. LISINOPRIL [Concomitant]
     Indication: BLOOD PRESSURE
     Dosage: UNK, ONCE A DAY
     Route: 065
     Dates: start: 19970101
  4. PROTONIX [Concomitant]
     Indication: GASTROOESOPHAGEAL REFLUX DISEASE
     Dosage: 20 MG, BID
     Route: 065
     Dates: start: 19970101
  5. NAPROXEN SODIUM [Suspect]
     Indication: BACK PAIN
     Dosage: 440 MG, SINGLE
     Route: 048
     Dates: start: 20120118, end: 20120118

REACTIONS (12)
  - GAIT DISTURBANCE [None]
  - ERYTHEMA [None]
  - MALAISE [None]
  - PRURITUS [None]
  - DIARRHOEA [None]
  - PALLOR [None]
  - NAUSEA [None]
  - BLINDNESS TRANSIENT [None]
  - HYPERSENSITIVITY [None]
  - PRESYNCOPE [None]
  - BLOOD PRESSURE DECREASED [None]
  - MEMORY IMPAIRMENT [None]
